FAERS Safety Report 23844586 (Version 1)
Quarter: 2024Q2

REPORT INFORMATION
  Report Type: Other
  Country: US (occurrence: None)
  Receive Date: 20240511
  Receipt Date: 20240511
  Transmission Date: 20240716
  Serious: Yes (Other)
  Sender: FDA-Public Use
  Company Number: US-ROCHE-2864617

PATIENT

DRUGS (4)
  1. MYCOPHENOLATE MOFETIL [Suspect]
     Active Substance: MYCOPHENOLATE MOFETIL
     Indication: Immunosuppression
     Dosage: 1-2 G/D
     Route: 065
  2. TACROLIMUS [Suspect]
     Active Substance: TACROLIMUS
     Indication: Immunosuppression
     Route: 065
  3. PREDNISONE [Suspect]
     Active Substance: PREDNISONE
     Indication: Immunosuppression
     Dosage: TAPERED TO 5 MG/D BY 1-3 MO POSTTRANSPLANT
     Route: 065
  4. BELATACEPT [Suspect]
     Active Substance: BELATACEPT
     Indication: Immunosuppression
     Route: 065

REACTIONS (6)
  - Haematological infection [Unknown]
  - Clostridium difficile infection [Unknown]
  - Arthritis infective [Unknown]
  - Urinary tract infection [Unknown]
  - Leukopenia [Unknown]
  - Diarrhoea [Unknown]
